FAERS Safety Report 8780510 (Version 1)
Quarter: 2012Q4

REPORT INFORMATION
  Report Type: Spontaneous
  Country: GB (occurrence: None)
  Receive Date: 20120829
  Receipt Date: 20120829
  Transmission Date: 20130627
  Serious: Yes (Other)
  Sender: FDA-Public Use
  Company Number: GB-DEXPHARM-20121117

PATIENT
  Age: 32 Year
  Sex: Female

DRUGS (10)
  1. SEROQUEL XL [Suspect]
     Dosage: sep.dosages / interval: 2 in one day
     Route: 048
     Dates: start: 20110323, end: 20110910
  2. SEROQUEL XL [Suspect]
     Dosage: sep.dosages / interval: 2 in one day
     Route: 048
     Dates: start: 20110323, end: 20110910
  3. SEROQUEL XL [Suspect]
     Dosage: sep.dosages / interval: 2 in one day
     Route: 048
     Dates: start: 20110323, end: 20110910
  4. OMEPRAZOLE [Suspect]
     Dosage: sep. dosages / interval 1 in 1 day
     Route: 048
     Dates: start: 20080909
  5. FLUOXETINE [Suspect]
     Dosage: sep. dosages / interval 1 in 1 day
     Route: 048
     Dates: start: 20100621, end: 20111004
  6. DIHYDROCODEINE [Suspect]
     Route: 048
     Dates: start: 20100315
  7. PROPRANOLOL [Suspect]
     Route: 048
     Dates: start: 20090505
  8. PROPRANOLOL [Suspect]
     Route: 048
     Dates: start: 20090505
  9. CITALOPRAM [Suspect]
     Dosage: sep. dosages / interval:
     Route: 048
     Dates: start: 20111004
  10. CHLORPROMAZINE HYDROCHLORIDE [Suspect]
     Dosage: sep. dosages /interval: 1 in 1 day
     Route: 048
     Dates: start: 20110922

REACTIONS (3)
  - Pre-eclampsia [None]
  - Maternal exposure during pregnancy [None]
  - Caesarean section [None]
